FAERS Safety Report 8033272-5 (Version None)
Quarter: 2011Q4

REPORT INFORMATION
  Report Type: 
  Country: None (occurrence: None)
  Receive Date: 20111202
  Receipt Date: 20110516
  Transmission Date: 20120403
  Serious: Yes (Disabling)
  Sender: FDA-Public Use
  Company Number: WAES 1105USA02552

PATIENT
  Age: 62 Year
  Sex: Female

DRUGS (3)
  1. FOSAMAX [Suspect]
     Indication: OSTEOPOROSIS
     Dosage: 70 MG/WKY/PO
     Route: 048
     Dates: start: 20060720, end: 20071205
  2. ALENDRONATE SODIUM [Suspect]
     Indication: OSTEOPOROSIS
     Dosage: 70 MG/WKY/PO
     Route: 048
     Dates: start: 20080911, end: 20090607
  3. FOSAMAX [Suspect]
     Indication: OSTEOPOROSIS
     Dosage: 70 MG/WKY/PO
     Route: 048
     Dates: start: 20080218, end: 20080619

REACTIONS (9)
  - EXOSTOSIS [None]
  - TOOTH DISORDER [None]
  - OSTEONECROSIS OF JAW [None]
  - CYSTITIS [None]
  - BONE FRAGMENTATION [None]
  - STOMATITIS [None]
  - ORAL INFECTION [None]
  - FALL [None]
  - EXPOSED BONE IN JAW [None]
